FAERS Safety Report 25102390 (Version 1)
Quarter: 2025Q1

REPORT INFORMATION
  Report Type: Report from Study
  Country: US (occurrence: US)
  Receive Date: 20250320
  Receipt Date: 20250320
  Transmission Date: 20250409
  Serious: Yes (Hospitalization, Other)
  Sender: ABBVIE
  Company Number: US-ABBVIE-6161371

PATIENT
  Age: 53 Year
  Sex: Female
  Weight: 62.595 kg

DRUGS (1)
  1. CREON [Suspect]
     Active Substance: PANCRELIPASE AMYLASE\PANCRELIPASE LIPASE\PANCRELIPASE PROTEASE
     Indication: Pancreatitis chronic
     Route: 048
     Dates: start: 20210201, end: 2024

REACTIONS (6)
  - Alcoholic pancreatitis [Recovered/Resolved]
  - Pancreatitis [Unknown]
  - Dizziness [Recovered/Resolved]
  - Clostridium difficile colitis [Unknown]
  - Occult blood positive [Unknown]
  - Dizziness [Unknown]

NARRATIVE: CASE EVENT DATE: 20250114
